FAERS Safety Report 26211231 (Version 1)
Quarter: 2025Q4

REPORT INFORMATION
  Report Type: Report from Study
  Country: JP (occurrence: JP)
  Receive Date: 20251230
  Receipt Date: 20251230
  Transmission Date: 20260117
  Serious: Yes (Death)
  Sender: SYMOGEN
  Company Number: JP-PARTNER THERAPEUTICS-2025PTX00124

PATIENT
  Age: 49 Year
  Sex: Male

DRUGS (1)
  1. SARGRAMOSTIM [Suspect]
     Active Substance: SARGRAMOSTIM
     Indication: Alveolar proteinosis
     Dosage: 250 ?G
     Dates: start: 20241217

REACTIONS (1)
  - Alveolar proteinosis [Fatal]

NARRATIVE: CASE EVENT DATE: 20250501
